FAERS Safety Report 21735499 (Version 2)
Quarter: 2023Q1

REPORT INFORMATION
  Report Type: Spontaneous
  Country: PT (occurrence: PT)
  Receive Date: 20221215
  Receipt Date: 20230105
  Transmission Date: 20230417
  Serious: Yes (Other)
  Sender: FDA-Public Use
  Company Number: PT-TEVA-2022-PT-2835023

PATIENT
  Age: 22 Year
  Sex: Male

DRUGS (2)
  1. CLOZAPINE [Suspect]
     Active Substance: CLOZAPINE
     Indication: Schizophrenia
     Dosage: HIS CLOZAPINE DOSE WAS TITRATED 50MG PER WEEK UNTIL 500MG IN 2017
     Route: 065
  2. CLOZAPINE [Suspect]
     Active Substance: CLOZAPINE
     Indication: Antipsychotic therapy
     Dosage: HIS CLOZAPINE DOSE WAS TITRATED 50MG PER WEEK UNTIL 500MG IN 2017
     Route: 065

REACTIONS (1)
  - Generalised tonic-clonic seizure [Unknown]
